FAERS Safety Report 18587785 (Version 1)
Quarter: 2020Q4

REPORT INFORMATION
  Report Type: Report from Study
  Country: CA (occurrence: CA)
  Receive Date: 20201207
  Receipt Date: 20201207
  Transmission Date: 20210114
  Serious: Yes (Other)
  Sender: FDA-Public Use
  Company Number: CA-PFIZER INC-2020294913

PATIENT
  Age: 87 Year
  Sex: Male
  Weight: 89.4 kg

DRUGS (4)
  1. ENCORAFENIB [Suspect]
     Active Substance: ENCORAFENIB
     Indication: COLON CANCER METASTATIC
     Dosage: 300 MG, DAILY
     Route: 048
     Dates: start: 20200713, end: 20200828
  2. ERBITUX [Suspect]
     Active Substance: CETUXIMAB
     Dosage: 250 MG/M2 (517 MG) WEEKLY
     Route: 042
     Dates: start: 20200720, end: 20200828
  3. ERBITUX [Suspect]
     Active Substance: CETUXIMAB
     Indication: COLON CANCER METASTATIC
     Dosage: 450 MG/M2 (828 MG) ON DAY 1 (13JUL2020)
     Route: 042
     Dates: start: 20200713
  4. FLOMAX [Concomitant]
     Active Substance: TAMSULOSIN HYDROCHLORIDE
     Indication: BENIGN PROSTATIC HYPERPLASIA
     Dosage: 0.4 MG, DAILY
     Route: 048

REACTIONS (12)
  - Hypophagia [Unknown]
  - Constipation [Unknown]
  - Rash pustular [Unknown]
  - Paronychia [Unknown]
  - Dehydration [Unknown]
  - Rash maculo-papular [Unknown]
  - Hypotension [Unknown]
  - Decreased appetite [Unknown]
  - Asthenia [Unknown]
  - Rash [Unknown]
  - Pustule [Unknown]
  - Diarrhoea [Unknown]

NARRATIVE: CASE EVENT DATE: 20200713
